FAERS Safety Report 16024347 (Version 1)
Quarter: 2019Q1

REPORT INFORMATION
  Report Type: Report from Study
  Country: ID (occurrence: ID)
  Receive Date: 20190301
  Receipt Date: 20190301
  Transmission Date: 20190418
  Serious: Yes (Death)
  Sender: FDA-Public Use
  Company Number: ID-ASTRAZENECA-2019SE27614

PATIENT
  Sex: Female

DRUGS (1)
  1. TAGRISSO [Suspect]
     Active Substance: OSIMERTINIB
     Indication: NON-SMALL CELL LUNG CANCER
     Route: 048
     Dates: start: 20190131

REACTIONS (4)
  - Pneumonia [Fatal]
  - Pleural effusion [Fatal]
  - Respiratory failure [Fatal]
  - Wrong technique in product usage process [Unknown]
